FAERS Safety Report 6616180-3 (Version None)
Quarter: 2010Q1

REPORT INFORMATION
  Report Type: 
  Country: None (occurrence: None)
  Receive Date: 20100305
  Receipt Date: 20100302
  Transmission Date: 20100710
  Serious: Yes (Hospitalization)
  Sender: FDA-Public Use
  Company Number: US-WYE-H13861410

PATIENT
  Sex: Male

DRUGS (10)
  1. NERATINIB [Suspect]
     Indication: NEOPLASM
     Route: 048
     Dates: start: 20091022, end: 20100213
  2. NYSTATIN [Concomitant]
     Indication: CANDIDIASIS
     Dosage: SWISH AND SWALLOW
     Route: 048
     Dates: start: 20100217
  3. DILTIAZEM HCL [Concomitant]
     Indication: HYPERTENSION
     Dosage: UNKNOWN
     Dates: start: 20090401
  4. ACETAMINOPHEN AND CODEINE PHOSPHATE [Concomitant]
     Indication: PAIN
     Dosage: UNKNOWN
     Dates: start: 20091001
  5. SIMVASTATIN [Concomitant]
     Indication: HYPERCHOLESTEROLAEMIA
     Dosage: UNKNOWN
     Dates: start: 20040101
  6. LORAZEPAM [Concomitant]
     Indication: ANXIETY
     Dosage: UNKNOWN
     Dates: start: 20060101
  7. ALLOPURINOL [Concomitant]
     Indication: GOUT
     Dosage: UNKNOWN
     Dates: start: 19940101
  8. WARFARIN SODIUM [Concomitant]
     Indication: ATRIAL FIBRILLATION
     Dosage: UNKNOWN
     Dates: start: 20090401
  9. TEMSIROLIMUS [Suspect]
     Indication: NEOPLASM
     Route: 042
     Dates: start: 20091022, end: 20100213
  10. METOPROLOL TARTRATE [Concomitant]
     Indication: ATRIAL FIBRILLATION
     Dosage: UNKNOWN
     Dates: start: 20090401

REACTIONS (2)
  - HYPOXIA [None]
  - MUCOSAL INFLAMMATION [None]
